FAERS Safety Report 5525947-4 (Version None)
Quarter: 2007Q4

REPORT INFORMATION
  Report Type: 
  Country: None (occurrence: None)
  Receive Date: 20071126
  Receipt Date: 20071115
  Transmission Date: 20080405
  Serious: Yes (Hospitalization)
  Sender: FDA-Public Use
  Company Number: GB-PFIZER INC-2007096819

PATIENT
  Sex: Female

DRUGS (3)
  1. EXEMESTANE [Suspect]
     Indication: BREAST CANCER METASTATIC
     Route: 048
  2. ALBUTEROL [Concomitant]
     Route: 055
  3. BUDESONIDE [Concomitant]
     Route: 055

REACTIONS (2)
  - PLEURISY [None]
  - PNEUMONIA [None]
